FAERS Safety Report 12061536 (Version 4)
Quarter: 2016Q1

REPORT INFORMATION
  Report Type: Spontaneous
  Country: US (occurrence: US)
  Receive Date: 20160210
  Receipt Date: 20160219
  Transmission Date: 20160526
  Serious: No
  Sender: FDA-Public Use
  Company Number: ALCN2016US001100

PATIENT
  Age: 82 Year
  Sex: Male
  Weight: 76.19 kg

DRUGS (2)
  1. PILOCARPINE HCL [Suspect]
     Active Substance: PILOCARPINE HYDROCHLORIDE
     Indication: BLEPHARITIS
     Dosage: 1 GTT, QD
     Route: 047
     Dates: start: 1996, end: 201511
  2. DORZOLAMIDE,TIMOLOL [Suspect]
     Active Substance: DORZOLAMIDE\TIMOLOL
     Indication: BLEPHARITIS
     Dosage: UNK
     Route: 047
     Dates: start: 1996, end: 201511

REACTIONS (3)
  - Vision blurred [Not Recovered/Not Resolved]
  - Product use issue [Not Recovered/Not Resolved]
  - Eyelid margin crusting [Not Recovered/Not Resolved]
